FAERS Safety Report 11699596 (Version 1)
Quarter: 2015Q4

REPORT INFORMATION
  Report Type: Report from Study
  Country: IN (occurrence: IN)
  Receive Date: 20151105
  Receipt Date: 20151105
  Transmission Date: 20160304
  Serious: Yes (Other)
  Sender: FDA-Public Use
  Company Number: IN-ROCHE-1654987

PATIENT
  Sex: Male

DRUGS (3)
  1. DEFLAZACORT [Concomitant]
     Active Substance: DEFLAZACORT
     Dosage: 6MG ORALLY ONCE A DAY
     Route: 048
     Dates: start: 20150417
  2. CELLCEPT [Suspect]
     Active Substance: MYCOPHENOLATE MOFETIL\MYCOPHENOLATE MOFETIL HYDROCHLORIDE
     Indication: RENAL TRANSPLANT
     Dosage: 1000MG ORALLY TWO TIMES A DAY
     Route: 048
     Dates: start: 20150417, end: 20151026
  3. TACROLIMUS. [Suspect]
     Active Substance: TACROLIMUS
     Indication: PRODUCT USED FOR UNKNOWN INDICATION
     Dosage: 1MG AND 0.5MG
     Route: 048
     Dates: start: 20150417

REACTIONS (2)
  - Toxicity to various agents [Unknown]
  - Blood creatinine increased [Unknown]
